FAERS Safety Report 6935103-0 (Version None)
Quarter: 2010Q3

REPORT INFORMATION
  Report Type: 
  Country: None (occurrence: None)
  Receive Date: 20100822
  Receipt Date: 20100812
  Transmission Date: 20110219
  Serious: Yes (Hospitalization)
  Sender: FDA-Public Use
  Company Number: PHHO2010US12577

PATIENT
  Age: 58 Year
  Sex: Female
  Weight: 62.5 kg

DRUGS (6)
  1. AFINITOR [Suspect]
     Indication: BREAST CANCER METASTATIC
     Dosage: 10 MG, DAILY
     Route: 048
     Dates: start: 20100729
  2. XELODA [Suspect]
     Indication: BREAST CANCER METASTATIC
     Dosage: 825 MG/M2
     Route: 048
     Dates: start: 20100729
  3. ZOMETA [Concomitant]
  4. ADVAIR DISKUS 100/50 [Concomitant]
  5. DO-DO [Concomitant]
  6. LEVOTHYROXINE SODIUM [Concomitant]

REACTIONS (10)
  - APHAGIA [None]
  - DYSPHAGIA [None]
  - FAILURE TO THRIVE [None]
  - FATIGUE [None]
  - FEBRILE NEUTROPENIA [None]
  - FLUID INTAKE REDUCED [None]
  - INFECTION [None]
  - ORAL PAIN [None]
  - STOMATITIS [None]
  - THROMBOCYTOPENIA [None]
